FAERS Safety Report 17245644 (Version 2)
Quarter: 2020Q1

REPORT INFORMATION
  Report Type: Spontaneous
  Country: CN (occurrence: CN)
  Receive Date: 20200108
  Receipt Date: 20200110
  Transmission Date: 20200409
  Serious: Yes (Other)
  Sender: FDA-Public Use
  Company Number: CN-TERSERA THERAPEUTICS LLC-2019TRS003015

PATIENT

DRUGS (4)
  1. ZOLADEX [Suspect]
     Active Substance: GOSERELIN ACETATE
     Indication: ENDOCRINE DISORDER
     Dosage: 3.6 MILLIGRAM EVERY 28 DAYS
     Route: 058
     Dates: end: 2017
  2. ZOLADEX [Suspect]
     Active Substance: GOSERELIN ACETATE
     Indication: PROSTATE CANCER
     Dosage: 3.6 MILLIGRAM EVERY 28 DAYS
     Route: 058
     Dates: start: 2017
  3. CASODEX [Suspect]
     Active Substance: BICALUTAMIDE
     Indication: PROSTATE CANCER
     Dosage: 1 DOSAGE FORM, OD (EVERY MORNING)
     Route: 048
     Dates: end: 2017
  4. CASODEX [Suspect]
     Active Substance: BICALUTAMIDE
     Dosage: 1 DOSAGE FORM, OD (EVERY MORNING)
     Route: 048
     Dates: start: 2017

REACTIONS (2)
  - Malignant neoplasm progression [Not Recovered/Not Resolved]
  - Hyperhidrosis [Not Recovered/Not Resolved]

NARRATIVE: CASE EVENT DATE: 2018
